FAERS Safety Report 17874582 (Version 1)
Quarter: 2020Q2

REPORT INFORMATION
  Report Type: Spontaneous
  Country: FR (occurrence: FR)
  Receive Date: 20200609
  Receipt Date: 20200609
  Transmission Date: 20200714
  Serious: Yes (Hospitalization)
  Sender: FDA-Public Use
  Company Number: FR-ACCORD-184577

PATIENT
  Age: 48 Year
  Sex: Male
  Weight: 83 kg

DRUGS (6)
  1. AZACTAM [Suspect]
     Active Substance: AZTREONAM
     Indication: PRODUCT USED FOR UNKNOWN INDICATION
     Route: 042
     Dates: start: 20200512
  2. VORICONAZOLE OHRE PHARMA [Suspect]
     Active Substance: VORICONAZOLE
     Indication: ASPERGILLUS INFECTION
     Route: 048
     Dates: start: 20200512, end: 20200518
  3. CYTARABINE SANDOZ [Suspect]
     Active Substance: CYTARABINE
     Indication: ACUTE LEUKAEMIA
     Route: 041
     Dates: start: 20200512, end: 20200514
  4. BISOCE [Suspect]
     Active Substance: BISOPROLOL
     Indication: MYOCARDITIS
     Route: 048
     Dates: start: 20200514
  5. COLCHICINE OPOCALCIUM [Suspect]
     Active Substance: COLCHICINE
     Indication: MYOCARDITIS
     Dosage: STRENGTH: 1 MG
     Route: 048
     Dates: start: 20200514
  6. DAPTOMYCIN ACCORD [Suspect]
     Active Substance: DAPTOMYCIN
     Indication: PRODUCT USED FOR UNKNOWN INDICATION
     Route: 042
     Dates: start: 20200512

REACTIONS (3)
  - Persecutory delusion [Recovered/Resolved]
  - Hallucination [Recovered/Resolved]
  - Confusional state [Recovered/Resolved]

NARRATIVE: CASE EVENT DATE: 20200518
